FAERS Safety Report 16368843 (Version 1)
Quarter: 2019Q2

REPORT INFORMATION
  Report Type: Spontaneous
  Country: ES (occurrence: ES)
  Receive Date: 20190529
  Receipt Date: 20190529
  Transmission Date: 20190711
  Serious: Yes (Life-Threatening, Hospitalization)
  Sender: FDA-Public Use
  Company Number: ES-GEHC-2018CSU001216

PATIENT

DRUGS (5)
  1. OMNIPAQUE [Suspect]
     Active Substance: IOHEXOL
     Indication: PRODUCT USED FOR UNKNOWN INDICATION
     Dosage: 90 ML, SINGLE
     Route: 042
     Dates: start: 20180322, end: 20180322
  2. METOCLOPRAMIDE. [Concomitant]
     Active Substance: METOCLOPRAMIDE
     Indication: NAUSEA
     Dosage: UNK, TID
     Route: 042
     Dates: start: 20180313
  3. DEXKETOPROFENO                     /01363801/ [Concomitant]
     Active Substance: DEXKETOPROFEN
     Indication: ABDOMINAL PAIN
     Dosage: UNK, TID
     Route: 042
     Dates: start: 20180313, end: 20180313
  4. BUSCAPINA [Concomitant]
     Indication: ABDOMINAL PAIN
     Dosage: UNK UNK, TID
     Route: 042
     Dates: start: 20180313
  5. PANTOPRAZOLE [Concomitant]
     Active Substance: PANTOPRAZOLE
     Indication: GASTRITIS PROPHYLAXIS
     Dosage: UNK, QD
     Route: 042
     Dates: start: 20180313

REACTIONS (6)
  - Eyelid oedema [Recovered/Resolved]
  - Anaphylactic shock [Recovering/Resolving]
  - Respiratory distress [Recovered/Resolved]
  - Sneezing [Recovered/Resolved]
  - Cough [Recovering/Resolving]
  - Lip oedema [Recovered/Resolved]

NARRATIVE: CASE EVENT DATE: 20180322
